FAERS Safety Report 7200787-9 (Version None)
Quarter: 2010Q4

REPORT INFORMATION
  Report Type: 
  Country: None (occurrence: None)
  Receive Date: 20101228
  Receipt Date: 20101217
  Transmission Date: 20110411
  Serious: Yes (Life-Threatening, Hospitalization, Disabling, Other)
  Sender: FDA-Public Use
  Company Number: FR-TEVA-213199ISR

PATIENT
  Sex: Male

DRUGS (8)
  1. COPAXONE [Suspect]
     Indication: MULTIPLE SCLEROSIS
     Route: 058
     Dates: start: 20030101
  2. ESOMEPRAZOLE MAGNESIUM [Concomitant]
  3. POTASSIUM CHLORIDE [Concomitant]
  4. TRAMADOL HYDROCHLORIDE [Concomitant]
  5. GABAPENTIN [Concomitant]
     Indication: NEURALGIA
     Route: 048
     Dates: start: 20090401
  6. PREGABALIN [Concomitant]
     Indication: PAIN
     Route: 048
     Dates: end: 20090401
  7. CLONAZEPAM [Concomitant]
     Indication: PAIN
     Route: 048
  8. PRAVASTATIN [Concomitant]
     Indication: HYPERCHOLESTEROLAEMIA
     Route: 048

REACTIONS (2)
  - ABDOMINAL PAIN [None]
  - SQUAMOUS CELL CARCINOMA [None]
